FAERS Safety Report 4359711-9 (Version None)
Quarter: 2004Q2

REPORT INFORMATION
  Report Type: 
  Country: None (occurrence: None)
  Receive Date: 20040518
  Receipt Date: 20030910
  Transmission Date: 20050107
  Serious: Yes (Other)
  Sender: FDA-Public Use
  Company Number: PHEH2003US08325

PATIENT
  Age: 79 Year
  Sex: Male

DRUGS (19)
  1. AREDIA [Suspect]
     Indication: MULTIPLE MYELOMA
     Dosage: 90MG/QMO
     Route: 042
     Dates: start: 20010501, end: 20020501
  2. ZOMETA [Suspect]
     Indication: MULTIPLE MYELOMA
     Dosage: 4MG/QMO
     Route: 042
     Dates: start: 20020501
  3. CLARITIN [Concomitant]
     Dosage: 10 MG, UNK
  4. ZOLOFT [Concomitant]
     Dosage: 25 MG, UNK
  5. CELEBREX [Concomitant]
     Dosage: 200 MG, UNK
  6. ALLOPURINOL TAB [Concomitant]
     Dosage: 300 MG, UNK
  7. WARFARIN SODIUM [Concomitant]
     Dosage: 4 MG, UNK
  8. PRILOSEC [Concomitant]
  9. OXYCONTIN [Concomitant]
  10. THALIDOMIDE [Concomitant]
     Indication: MULTIPLE MYELOMA
     Dosage: 100 MG, UNK
     Route: 048
     Dates: start: 20010911
  11. FUROSEMIDE [Concomitant]
     Dosage: 40 MG, UNK
  12. ALBUTEROL [Concomitant]
     Dosage: UNK, QID
  13. IPRATROPIUM BROMIDE [Concomitant]
     Dosage: UNK, QID
  14. CENTRUM [Concomitant]
     Dosage: 1 TABLET, QD
  15. SENOKOT [Concomitant]
  16. TOPROL-XL [Concomitant]
     Dosage: 12.5 MG, UNK
  17. MELPHALAN [Concomitant]
     Indication: MULTIPLE MYELOMA
     Dosage: 29MG/QD/X4DAYS/X2
     Route: 048
     Dates: start: 20010601, end: 20010801
  18. PREDNISONE [Concomitant]
     Dosage: 100 MG/QD/X5DAYS/X3
     Route: 048
     Dates: start: 20010601, end: 20010904
  19. CYTOXAN [Concomitant]
     Indication: MULTIPLE MYELOMA
     Dosage: 1G/N2/Q3WKS
     Route: 048
     Dates: start: 20010801, end: 20010901

REACTIONS (7)
  - DENTAL TREATMENT [None]
  - JAW OPERATION [None]
  - OSTEOMYELITIS [None]
  - OSTEOMYELITIS CHRONIC [None]
  - OSTEONECROSIS [None]
  - SEQUESTRECTOMY [None]
  - TOOTH EXTRACTION [None]
